FAERS Safety Report 23965860 (Version 10)
Quarter: 2024Q4

REPORT INFORMATION
  Report Type: Report from Study
  Country: CH (occurrence: CH)
  Receive Date: 20240612
  Receipt Date: 20241213
  Transmission Date: 20250114
  Serious: Yes (Hospitalization)
  Sender: ABBVIE
  Company Number: CH-ABBVIE-5790299

PATIENT
  Age: 72 Year
  Sex: Female

DRUGS (10)
  1. CARBIDOPA\LEVODOPA [Suspect]
     Active Substance: CARBIDOPA\LEVODOPA
     Indication: Parkinson^s disease
     Dosage: MD: 5.0 ML, CRD: 5.0 ML/H, ED: 2.0 ML, CRN: 3.5 ML/H, FREQUENCY TEXT: 24H THERAPY
     Route: 050
     Dates: start: 20240513, end: 20240516
  2. CARBIDOPA\LEVODOPA [Suspect]
     Active Substance: CARBIDOPA\LEVODOPA
     Dosage: MD: 8.0 ML, CRD: 5.8 ML/H, ED: 2.0 ML, CRN: 3.5 ML/H, FREQUENCY TEXT: 24H THERAPY?LAST ADMIN DATE...
     Route: 050
     Dates: start: 20240516
  3. CARBIDOPA\LEVODOPA [Suspect]
     Active Substance: CARBIDOPA\LEVODOPA
     Dosage: MD: 8.0 ML, CRD: 6.4 ML/H, ED: 3.0 ML, CRN: 4.4 ML/H?FREQUENCY TEXT: 24H THERAPY
     Route: 050
     Dates: start: 20240620, end: 20240629
  4. CARBIDOPA\LEVODOPA [Suspect]
     Active Substance: CARBIDOPA\LEVODOPA
     Dosage: MD: 8.0 ML, CRD: 6.6 ML/H, ED: 3.0 ML, CRN: 4.4 ML/H?FREQUENCY TEXT: 24H THERAPY
     Route: 050
  5. CARBIDOPA\LEVODOPA [Suspect]
     Active Substance: CARBIDOPA\LEVODOPA
     Dosage: MD: 9.0 ML, CRD: 2.6 ML/H, ED: 3.0 ML, CRN: 2.5 ML/H?24H THERAPY
     Route: 050
     Dates: start: 20240910, end: 202410
  6. CARBIDOPA\LEVODOPA [Suspect]
     Active Substance: CARBIDOPA\LEVODOPA
     Dosage: MD: 9.0 ML, CRD: 6.4 ML/H, ED: 3.0 ML, CRN: 4.4 ML/H?24H THERAPY
     Route: 050
     Dates: start: 20240629, end: 20240711
  7. CARBIDOPA\LEVODOPA [Suspect]
     Active Substance: CARBIDOPA\LEVODOPA
     Dosage: MD: 9.0 ML, CRD: 2.5 ML/H, ED: 3.0 ML, CRN: 2.5 ML/H?24H THERAPY
     Route: 050
     Dates: start: 20240711, end: 20240806
  8. CARBIDOPA\LEVODOPA [Suspect]
     Active Substance: CARBIDOPA\LEVODOPA
     Dosage: MD: 9.0 ML, CRD: 2.8 ML/H, ED: 2.5 ML, CRN: 2.5 ML/H
     Route: 050
     Dates: start: 20241010, end: 20241022
  9. CARBIDOPA\LEVODOPA [Suspect]
     Active Substance: CARBIDOPA\LEVODOPA
     Dosage: MD: 9.0 ML, CRD: 2.9 ML/H, ED: 2.0 ML, CRN: 2.0 ML/H
     Route: 050
     Dates: start: 20241022
  10. BENSERAZIDE HYDROCHLORIDE\LEVODOPA [Concomitant]
     Active Substance: BENSERAZIDE HYDROCHLORIDE\LEVODOPA
     Indication: Parkinson^s disease
     Route: 065

REACTIONS (15)
  - Dehydration [Unknown]
  - Anuria [Recovered/Resolved]
  - Hallucination [Recovered/Resolved]
  - Fluid intake reduced [Recovered/Resolved]
  - Urinary tract infection [Unknown]
  - Mental disorder [Recovered/Resolved]
  - Restlessness [Recovered/Resolved]
  - Akinesia [Not Recovered/Not Resolved]
  - Overdose [Not Recovered/Not Resolved]
  - Fatigue [Not Recovered/Not Resolved]
  - Device issue [Recovered/Resolved]
  - Gait disturbance [Not Recovered/Not Resolved]
  - Therapeutic product effect incomplete [Unknown]
  - Hallucination [Not Recovered/Not Resolved]
  - Freezing phenomenon [Not Recovered/Not Resolved]

NARRATIVE: CASE EVENT DATE: 20240101
